FAERS Safety Report 4719165-7 (Version None)
Quarter: 2005Q3

REPORT INFORMATION
  Report Type: 
  Country: None (occurrence: None)
  Receive Date: 20050719
  Receipt Date: 20050704
  Transmission Date: 20060218
  Serious: Yes (Other)
  Sender: FDA-Public Use
  Company Number: 2005085124

PATIENT
  Age: 71 Year
  Sex: Male

DRUGS (4)
  1. VIAGRA [Suspect]
     Indication: ERECTILE DYSFUNCTION
     Dosage: 100 MG (100 MG, AS NECESSARY), ORAL
     Route: 048
     Dates: start: 19980101
  2. LOSARTAN [Concomitant]
  3. ASPIRIN [Concomitant]
  4. SELOZOK (METOPROLOL SUCCINATE) [Concomitant]

REACTIONS (2)
  - CARDIAC FIBRILLATION [None]
  - INFARCTION [None]
